FAERS Safety Report 19446263 (Version 1)
Quarter: 2021Q2

REPORT INFORMATION
  Report Type: Spontaneous
  Country: US (occurrence: US)
  Receive Date: 20210622
  Receipt Date: 20210622
  Transmission Date: 20210717
  Serious: Yes (Other)
  Sender: FDA-Public Use
  Company Number: US-AUROBINDO-AUR-APL-2021-025881

PATIENT
  Age: 17 Year
  Sex: Female

DRUGS (1)
  1. NORETHINDRONE. [Suspect]
     Active Substance: NORETHINDRONE
     Indication: ENDOMETRIOSIS
     Dosage: 15 MILLIGRAM, ONCE A DAY
     Route: 065

REACTIONS (3)
  - Vomiting [Unknown]
  - Hepatic adenoma [Unknown]
  - Nausea [Unknown]
